FAERS Safety Report 12701066 (Version 1)
Quarter: 2016Q3

REPORT INFORMATION
  Report Type: Spontaneous
  Country: US (occurrence: US)
  Receive Date: 20160831
  Receipt Date: 20160831
  Transmission Date: 20161109
  Serious: Yes (Hospitalization, Other)
  Sender: FDA-Public Use
  Company Number: US-CIPLA LTD.-2016US17707

PATIENT

DRUGS (3)
  1. BUPROPION. [Suspect]
     Active Substance: BUPROPION
     Dosage: UNK, OCASIONALLY AS NASAL INSUFFLATION
  2. OLANZAPINE. [Suspect]
     Active Substance: OLANZAPINE
     Dosage: 10 MG, DAILY
     Route: 048
  3. BUPROPION. [Suspect]
     Active Substance: BUPROPION
     Dosage: 150 MG, BID
     Route: 048

REACTIONS (6)
  - Haematoma [Unknown]
  - Skin abrasion [Unknown]
  - Seizure [Recovered/Resolved]
  - Euphoric mood [Recovered/Resolved]
  - Tachycardia [Unknown]
  - Drug abuse [Unknown]
